FAERS Safety Report 7975607-5 (Version None)
Quarter: 2011Q4

REPORT INFORMATION
  Report Type: 
  Country: None (occurrence: None)
  Receive Date: 20111213
  Receipt Date: 20111004
  Transmission Date: 20120403
  Serious: No
  Sender: FDA-Public Use
  Company Number: US-AMGEN-USASP2011051366

PATIENT
  Age: 60 Year
  Sex: Female

DRUGS (1)
  1. ENBREL [Suspect]
     Indication: RHEUMATOID ARTHRITIS
     Dosage: 50 MG, QWK
     Dates: start: 20001001

REACTIONS (4)
  - BLOOD CREATINE INCREASED [None]
  - CYSTITIS [None]
  - WHITE BLOOD CELL COUNT DECREASED [None]
  - HEPATIC ENZYME INCREASED [None]
